FAERS Safety Report 10234989 (Version 1)
Quarter: 2014Q2

REPORT INFORMATION
  Report Type: Report from Study
  Country: US (occurrence: US)
  Receive Date: 20140613
  Receipt Date: 20140613
  Transmission Date: 20141212
  Serious: Yes (Other)
  Sender: FDA-Public Use
  Company Number: US-JNJFOC-20140604317

PATIENT
  Age: 38 Year
  Sex: Female
  Weight: 68.04 kg

DRUGS (3)
  1. REMICADE [Suspect]
     Indication: PSORIATIC ARTHROPATHY
     Dosage: 3RD LOADING DOSE
     Route: 042
     Dates: end: 201301
  2. REMICADE [Suspect]
     Indication: PSORIATIC ARTHROPATHY
     Route: 042
     Dates: start: 201211
  3. PREDNISONE [Concomitant]
     Indication: SWELLING
     Route: 048
     Dates: start: 201203

REACTIONS (1)
  - Skin lesion [Not Recovered/Not Resolved]
